FAERS Safety Report 5264048-X (Version None)
Quarter: 2007Q1

REPORT INFORMATION
  Report Type: 
  Country: None (occurrence: None)
  Receive Date: 20070313
  Receipt Date: 20070227
  Transmission Date: 20070707
  Serious: Yes (Other)
  Sender: FDA-Public Use
  Company Number: GB-ELI_LILLY_AND_COMPANY-GB200702005564

PATIENT
  Age: 5 Year
  Sex: Male
  Weight: 22.75 kg

DRUGS (6)
  1. STRATTERA [Suspect]
     Indication: ATTENTION DEFICIT/HYPERACTIVITY DISORDER
     Dosage: 10 MG, UNK
     Route: 048
     Dates: start: 20070108
  2. STRATTERA [Suspect]
     Dosage: 25 MG, UNK
     Route: 048
     Dates: start: 20070115, end: 20070206
  3. AMOXICILLIN [Concomitant]
     Indication: EAR INFECTION
     Dosage: 5 ML, 3/D
     Route: 048
     Dates: start: 20070119, end: 20070126
  4. BECOTIDE [Concomitant]
     Indication: CHEST DISCOMFORT
     Dosage: 2 D/F, 2/D
     Route: 055
     Dates: start: 20070101
  5. FISH OIL [Concomitant]
     Dosage: 5 ML, DAILY (1/D)
     Route: 048
     Dates: start: 20061101
  6. VENTOLIN [Concomitant]
     Indication: CHEST DISCOMFORT
     Dosage: UNK, AS NEEDED
     Route: 055
     Dates: start: 20070101

REACTIONS (5)
  - ABNORMAL BEHAVIOUR [None]
  - ANXIETY [None]
  - BLOOD PRESSURE INCREASED [None]
  - FEAR [None]
  - HALLUCINATION [None]
